FAERS Safety Report 5139562-8 (Version None)
Quarter: 2006Q4

REPORT INFORMATION
  Report Type: 
  Country: None (occurrence: None)
  Receive Date: 20061024
  Receipt Date: 20061012
  Transmission Date: 20070319
  Serious: Yes (Hospitalization)
  Sender: FDA-Public Use
  Company Number: 2006126250

PATIENT
  Sex: Female

DRUGS (1)
  1. SOMATROPIN (SOMATROPIN) [Suspect]
     Dosage: 0.6 MG (0.6 MG, 1 N 1 D)
     Dates: start: 20060612, end: 20060821

REACTIONS (3)
  - CIRCULATORY COLLAPSE [None]
  - HEADACHE [None]
  - VENTRICULO-PERITONEAL SHUNT [None]
